FAERS Safety Report 19239160 (Version 1)
Quarter: 2021Q2

REPORT INFORMATION
  Report Type: Spontaneous
  Country: ES (occurrence: ES)
  Receive Date: 20210510
  Receipt Date: 20210510
  Transmission Date: 20210717
  Serious: Yes (Other)
  Sender: FDA-Public Use
  Company Number: ES-TEVA-2021-ES-1909963

PATIENT
  Age: 21 Year
  Sex: Male

DRUGS (9)
  1. LINEZOLID. [Suspect]
     Active Substance: LINEZOLID
     Indication: BRAIN ABSCESS
     Dosage: 1800 MILLIGRAM DAILY;
     Route: 042
  2. DEXAMETHASONE. [Concomitant]
     Active Substance: DEXAMETHASONE
     Indication: BRAIN ABSCESS
     Dosage: 12 MILLIGRAM DAILY;
     Route: 065
  3. COTRIMOXAZOLE [Concomitant]
     Active Substance: SULFAMETHOXAZOLE\TRIMETHOPRIM
     Indication: BRAIN ABSCESS
     Dosage: 800/160MG
     Route: 065
  4. LINEZOLID. [Suspect]
     Active Substance: LINEZOLID
     Indication: BRAIN ABSCESS
     Route: 048
  5. METRONIDAZOLE. [Suspect]
     Active Substance: METRONIDAZOLE
     Indication: BRAIN ABSCESS
     Dosage: 1000 MILLIGRAM DAILY;
     Route: 042
  6. CEFTRIAXONE. [Concomitant]
     Active Substance: CEFTRIAXONE
     Indication: BRAIN ABSCESS
     Dosage: 4 GRAM DAILY;
     Route: 065
  7. METRONIDAZOLE. [Suspect]
     Active Substance: METRONIDAZOLE
     Route: 048
  8. CEFTAZIDIME. [Suspect]
     Active Substance: CEFTAZIDIME
     Indication: BRAIN ABSCESS
     Dosage: 6 GRAM DAILY;
     Route: 042
  9. CIPROFLOXACIN. [Concomitant]
     Active Substance: CIPROFLOXACIN
     Indication: BRAIN ABSCESS
     Dosage: 1500 MILLIGRAM DAILY;
     Route: 065

REACTIONS (2)
  - Leukopenia [Recovering/Resolving]
  - Liver disorder [Recovering/Resolving]
